FAERS Safety Report 20818651 (Version 1)
Quarter: 2022Q2

REPORT INFORMATION
  Report Type: Spontaneous
  Country: CA (occurrence: None)
  Receive Date: 20220512
  Receipt Date: 20220512
  Transmission Date: 20220721
  Serious: Yes (Other)
  Sender: FDA-Public Use
  Company Number: CA-ROCHE-3093546

PATIENT
  Age: 76 Year
  Sex: Male

DRUGS (31)
  1. ACTEMRA [Suspect]
     Active Substance: TOCILIZUMAB
     Indication: Rheumatoid arthritis
     Dosage: DRUG DOSE FIRST ADMINISTERED IS 174.0 MILLIGRAMTHERAPY DURATION + THERAPY DURATION UNITS IS 96 DAYS
     Route: 042
  2. ACTEMRA [Suspect]
     Active Substance: TOCILIZUMAB
     Dosage: DRUG DOSE FIRST ADMINISTERED IS 174.0 MILLIGRAM
     Route: 042
  3. ACTEMRA [Suspect]
     Active Substance: TOCILIZUMAB
     Dosage: DRUG DOSE FIRST ADMINISTERED IS 172.0 MILLIGRAM?THERAPY DURATION + THERAPY DURATION UNITS IS 1 DAYS
     Route: 042
  4. ACTEMRA [Suspect]
     Active Substance: TOCILIZUMAB
     Dosage: DRUG DOSE FIRST ADMINISTERED IS 261.0 MILLIGRAM
     Route: 042
  5. ACTEMRA [Suspect]
     Active Substance: TOCILIZUMAB
     Dosage: DRUG DOSE FIRST ADMINISTERED IS 170.0 MILLIGRAM?THERAPY DURATION + THERAPY DURATION UNITS IS 1 DAYS
     Route: 042
  6. ACTEMRA [Suspect]
     Active Substance: TOCILIZUMAB
     Dosage: DRUG DOSE FIRST ADMINISTERED IS 720.0 MILLIGRAM
     Route: 042
  7. ACTEMRA [Suspect]
     Active Substance: TOCILIZUMAB
     Dosage: DRUG DOSE FIRST ADMINISTERED IS 348.0 MILLIGRAM
     Route: 042
  8. ACTEMRA [Suspect]
     Active Substance: TOCILIZUMAB
     Dosage: DRUG DOSE FIRST ADMINISTERED IS 696.0 MILLIGRAM
     Route: 042
  9. ACTEMRA [Suspect]
     Active Substance: TOCILIZUMAB
     Dosage: DRUG DOSE FIRST ADMINISTERED IS 262.0 MILLIGRAM?THERAPY DURATION + THERAPY DURATION UNITS IS 41 DAYS
     Route: 042
  10. ACTEMRA [Suspect]
     Active Substance: TOCILIZUMAB
     Dosage: DRUG DOSE FIRST ADMINISTERED IS 176.0 MILLIGRAM?THERAPY DURATION + THERAPY DURATION UNITS IS 40 DAYS
     Route: 042
  11. ACTEMRA [Suspect]
     Active Substance: TOCILIZUMAB
     Dosage: DRUG DOSE FIRST ADMINISTERED IS 720.0 MILLIGRAM?THERAPY DURATION + THERAPY DURATION UNITS IS 30 DAYS
     Route: 042
  12. ACTEMRA [Suspect]
     Active Substance: TOCILIZUMAB
     Dosage: DRUG DOSE FIRST ADMINISTERED IS 760.0 MILLIGRAM?THERAPY DURATION + THERAPY DURATION UNITS IS 57 DAYS
     Route: 042
  13. ACTEMRA [Suspect]
     Active Substance: TOCILIZUMAB
     Dosage: DRUG DOSE FIRST ADMINISTERED IS 261.0 MILLIGRAM?THERAPY DURATION + THERAPY DURATION UNITS IS 1 DAYS
     Route: 042
  14. ACTEMRA [Suspect]
     Active Substance: TOCILIZUMAB
     Dosage: DRUG DOSE FIRST ADMINISTERED IS 174.0 MILLIGRAM
     Route: 042
  15. CLONAZEPAM [Suspect]
     Active Substance: CLONAZEPAM
     Indication: Product used for unknown indication
     Route: 065
  16. TAMSULOSIN [Concomitant]
     Active Substance: TAMSULOSIN
  17. DIOVAN [Concomitant]
     Active Substance: VALSARTAN
  18. ASPIRIN [Concomitant]
     Active Substance: ASPIRIN
     Dosage: DRUG DOSE FIRST ADMINISTERED IS NOT PROVIDED
  19. DIMENHYDRINATE [Concomitant]
     Active Substance: DIMENHYDRINATE
     Dosage: DRUG DOSE FIRST ADMINISTERED IS NOT PROVIDED
  20. FERROUS GLUCONATE [Concomitant]
     Active Substance: FERROUS GLUCONATE
  21. SIMPONI [Concomitant]
     Active Substance: GOLIMUMAB
     Dosage: DRUG DOSE FIRST ADMINISTERED IS NOT PROVIDED
  22. VITAMIN D [Concomitant]
     Active Substance: VITAMIN D NOS
     Dosage: DRUG DOSE FIRST ADMINISTERED IS NOT PROVIDED
  23. MELOXICAM [Concomitant]
     Active Substance: MELOXICAM
  24. AMITRIPTYLINE [Concomitant]
     Active Substance: AMITRIPTYLINE
  25. BISOPROLOL [Concomitant]
     Active Substance: BISOPROLOL
     Route: 065
  26. RABEPRAZOLE SODIUM [Concomitant]
     Active Substance: RABEPRAZOLE SODIUM
  27. TRAZODONE [Concomitant]
     Active Substance: TRAZODONE HYDROCHLORIDE
  28. CRESTOR [Concomitant]
     Active Substance: ROSUVASTATIN CALCIUM
  29. MYRBETRIQ [Concomitant]
     Active Substance: MIRABEGRON
  30. MEDROL [Concomitant]
     Active Substance: METHYLPREDNISOLONE
  31. AMLODIPINE [Concomitant]
     Active Substance: AMLODIPINE BESYLATE
     Route: 065

REACTIONS (8)
  - Full blood count abnormal [Unknown]
  - Blood pressure fluctuation [Unknown]
  - Weight increased [Unknown]
  - Blood pressure systolic increased [Unknown]
  - Neutropenia [Unknown]
  - Heart rate decreased [Unknown]
  - Oxygen saturation decreased [Unknown]
  - Weight decreased [Unknown]
